FAERS Safety Report 9323712 (Version 1)
Quarter: 2013Q2

REPORT INFORMATION
  Report Type: Spontaneous
  Country: KR (occurrence: KR)
  Receive Date: 20130603
  Receipt Date: 20130603
  Transmission Date: 20140414
  Serious: Yes (Hospitalization)
  Sender: FDA-Public Use
  Company Number: KR-JNJFOC-20130516017

PATIENT
  Age: 10 Month
  Sex: Male

DRUGS (3)
  1. CHILDREN^S TYLENOL [Suspect]
     Indication: PYREXIA
     Route: 048
     Dates: start: 201210
  2. CHILDREN^S TYLENOL [Suspect]
     Indication: PYREXIA
     Route: 048
     Dates: start: 20120907
  3. CHILDREN^S TYLENOL [Suspect]
     Indication: PYREXIA
     Route: 048
     Dates: start: 2012

REACTIONS (2)
  - Hepatitis acute [Recovered/Resolved]
  - Product quality issue [Unknown]
